FAERS Safety Report 21066362 (Version 3)
Quarter: 2022Q4

REPORT INFORMATION
  Report Type: Spontaneous
  Country: JP (occurrence: JP)
  Receive Date: 20220711
  Receipt Date: 20221128
  Transmission Date: 20230113
  Serious: Yes (Hospitalization)
  Sender: FDA-Public Use
  Company Number: JP-DSJP-DSJ-2022-124155

PATIENT
  Age: 86 Year
  Sex: Female
  Weight: 34 kg

DRUGS (21)
  1. EDOXABAN TOSYLATE [Suspect]
     Active Substance: EDOXABAN TOSYLATE
     Indication: Atrial fibrillation
     Dosage: 30 MG, QD
     Route: 048
     Dates: start: 20210602
  2. EDOXABAN TOSYLATE [Suspect]
     Active Substance: EDOXABAN TOSYLATE
     Dosage: 15 MG, QD
     Route: 048
     Dates: end: 20220211
  3. MAGNESIUM OXIDE [Concomitant]
     Active Substance: MAGNESIUM OXIDE
     Indication: Constipation
     Dosage: 330 MG, TID, AFTER EACH MEAL
     Route: 048
  4. PANTETHINE [Concomitant]
     Active Substance: PANTETHINE
     Indication: Constipation
     Dosage: 200 MG, TID, AFTER EACH MEAL
     Route: 048
  5. HERBALS [Concomitant]
     Active Substance: HERBALS
     Indication: Constipation
     Dosage: 2.5 G, BID, AFTER BREAKFAST AND DINNER
     Route: 048
  6. LAGNOS NF [Concomitant]
     Indication: Constipation
     Dosage: 24 G, BID, AFTER BREAKFAST AND DINNER
     Route: 048
  7. CALONAL [Concomitant]
     Active Substance: ACETAMINOPHEN
     Indication: Musculoskeletal pain
     Dosage: 400 MG, TID, AFTER EACH MEAL
     Route: 048
     Dates: start: 202105
  8. URSODIOL [Concomitant]
     Active Substance: URSODIOL
     Indication: Cholelithiasis
     Dosage: 100 MG, TID, AFTER EACH MEAL
     Route: 048
     Dates: start: 1985
  9. SPIRONOLACTONE [Concomitant]
     Active Substance: SPIRONOLACTONE
     Indication: Cardiac failure chronic
     Dosage: 12.5 MG, QD, AFTER BREAKFAST
     Route: 048
     Dates: start: 201703
  10. NEXIUM [Concomitant]
     Active Substance: ESOMEPRAZOLE MAGNESIUM
     Dosage: 20 MG, QD, AFTER BREAKFAST
     Route: 048
  11. BISOPROLOL FUMARATE [Concomitant]
     Active Substance: BISOPROLOL FUMARATE
     Indication: Cardiac failure chronic
     Dosage: 0.625 MG, QD, AFTER BREAKFAST
     Route: 048
     Dates: start: 201608
  12. SODIUM FERROUS CITRATE [Concomitant]
     Active Substance: SODIUM FERROUS CITRATE
     Indication: Anaemia
     Dosage: 100 MG, QD, AFTER BREAKFAST
     Route: 048
     Dates: start: 20210521
  13. LOSARTAN POTASSIUM [Concomitant]
     Active Substance: LOSARTAN POTASSIUM
     Indication: Hypertension
     Dosage: 50 MG, QD, AFTER BREAKFAST
     Route: 048
  14. AMBROXOL HYDROCHLORIDE [Concomitant]
     Active Substance: AMBROXOL HYDROCHLORIDE
     Indication: Cough
     Dosage: 45 MG, QD, AFTER BREAKFAST
     Route: 048
     Dates: start: 20220127
  15. AMBROXOL HYDROCHLORIDE [Concomitant]
     Active Substance: AMBROXOL HYDROCHLORIDE
     Indication: Productive cough
  16. ROZEREM [Concomitant]
     Active Substance: RAMELTEON
     Indication: Insomnia
     Dosage: 8 MG, QD, BEFORE BEDTIME
     Route: 048
     Dates: start: 201410
  17. TRAZODONE [Concomitant]
     Active Substance: TRAZODONE HYDROCHLORIDE
     Indication: Insomnia
     Dosage: 25 MG, QD, BEFORE BEDTIME
     Route: 048
     Dates: start: 202105
  18. ELOBIXIBAT [Concomitant]
     Active Substance: ELOBIXIBAT
     Indication: Constipation
     Dosage: 15 MG, QD, BEFORE BREAKFAST
     Route: 048
  19. AZOSEMIDE [Concomitant]
     Active Substance: AZOSEMIDE
     Indication: Cardiac failure chronic
     Dosage: AFTER BREAKFAST 60MG, AFTER LUNCH 30MG, BID
     Route: 048
     Dates: end: 20220121
  20. AMBROXOL HYDROCHLORIDE [Concomitant]
     Active Substance: AMBROXOL HYDROCHLORIDE
     Indication: Cough
     Dosage: 15 MG, TID
     Route: 048
     Dates: start: 201703, end: 20220126
  21. AMBROXOL HYDROCHLORIDE [Concomitant]
     Active Substance: AMBROXOL HYDROCHLORIDE
     Indication: Productive cough

REACTIONS (4)
  - Cardiac failure chronic [Recovering/Resolving]
  - Anaemia [Recovering/Resolving]
  - Haemorrhagic diathesis [Recovering/Resolving]
  - Epistaxis [Unknown]

NARRATIVE: CASE EVENT DATE: 20220121
